FAERS Safety Report 8899829 (Version 1)
Quarter: 2012Q4

REPORT INFORMATION
  Report Type: 
  Country: US (occurrence: US)
  Receive Date: 20121108
  Receipt Date: 20121108
  Transmission Date: 20130627
  Serious: No
  Sender: FDA-Public Use
  Company Number: US-AMGEN-USASP2012032236

PATIENT
  Age: 64 Year
  Sex: Female

DRUGS (13)
  1. ENBREL [Suspect]
     Indication: RHEUMATOID ARTHRITIS
     Dosage: 50 mg, qwk
     Dates: start: 2007
  2. MECLIZINE                          /00072801/ [Concomitant]
  3. HYDROCODONE [Concomitant]
  4. LEFLUNOMIDE [Concomitant]
  5. FAMOTIDINE [Concomitant]
  6. CYMBALTA [Concomitant]
  7. OPANA [Concomitant]
  8. ATENOLOL [Concomitant]
  9. LIPITOR [Concomitant]
  10. GABAPENTIN [Concomitant]
  11. AMITRIPTYLINE [Concomitant]
  12. LISINOPRIL [Concomitant]
  13. CELEBREX [Concomitant]

REACTIONS (1)
  - Upper respiratory tract infection [Recovered/Resolved]
